FAERS Safety Report 25573927 (Version 2)
Quarter: 2025Q3

REPORT INFORMATION
  Report Type: Spontaneous
  Country: JP (occurrence: JP)
  Receive Date: 20250717
  Receipt Date: 20250730
  Transmission Date: 20251021
  Serious: Yes (Hospitalization, Disabling)
  Sender: BAUSCH AND LOMB
  Company Number: JP-MLMSERVICE-20250708-PI563411-00117-1

PATIENT
  Age: 8 Year
  Sex: Female

DRUGS (7)
  1. DEXAMETHASONE [Suspect]
     Active Substance: DEXAMETHASONE
     Indication: B precursor type acute leukaemia
     Route: 065
  2. DEXAMETHASONE [Suspect]
     Active Substance: DEXAMETHASONE
     Indication: B precursor type acute leukaemia
     Route: 065
  3. DEXAMETHASONE [Suspect]
     Active Substance: DEXAMETHASONE
     Route: 065
  4. ASPARAGINASE [Suspect]
     Active Substance: ASPARAGINASE
     Indication: B precursor type acute leukaemia
     Route: 065
  5. ASPARAGINASE [Suspect]
     Active Substance: ASPARAGINASE
     Route: 065
  6. PREDNISOLONE [Suspect]
     Active Substance: PREDNISOLONE
     Indication: B precursor type acute leukaemia
     Route: 065
  7. VITAMIN D3 [Concomitant]
     Active Substance: CHOLECALCIFEROL
     Indication: Vitamin D decreased

REACTIONS (5)
  - Osteonecrosis [Recovering/Resolving]
  - Osteoporosis [Recovering/Resolving]
  - Foot fracture [Recovering/Resolving]
  - Upper limb fracture [Recovering/Resolving]
  - Fractured sacrum [Recovering/Resolving]
